FAERS Safety Report 4280220-X (Version None)
Quarter: 2004Q1

REPORT INFORMATION
  Report Type: 
  Country: None (occurrence: None)
  Receive Date: 20040126
  Receipt Date: 20040112
  Transmission Date: 20041129
  Serious: Yes (Other)
  Sender: FDA-Public Use
  Company Number: 2004002262

PATIENT
  Age: 37 Year
  Sex: Female
  Weight: 61.2356 kg

DRUGS (2)
  1. NEURONTIN [Suspect]
     Indication: BACK PAIN
     Dosage: 300 MG (ONCE), ORAL
     Route: 048
     Dates: start: 20010101, end: 20010101
  2. VALPROATE SODIUM [Suspect]
     Indication: AFFECTIVE DISORDER

REACTIONS (16)
  - AMNESIA [None]
  - ANXIETY [None]
  - BACK PAIN [None]
  - BRADYPHRENIA [None]
  - CEREBROVASCULAR ACCIDENT [None]
  - COGNITIVE DETERIORATION [None]
  - COLITIS ISCHAEMIC [None]
  - DEPRESSION [None]
  - DYSARTHRIA [None]
  - EYELID PTOSIS [None]
  - FACIAL PALSY [None]
  - HEADACHE [None]
  - HYPOAESTHESIA [None]
  - IMPAIRED DRIVING ABILITY [None]
  - INTERVERTEBRAL DISC DEGENERATION [None]
  - PARAESTHESIA [None]
